FAERS Safety Report 19241209 (Version 6)
Quarter: 2021Q3

REPORT INFORMATION
  Report Type: Spontaneous
  Country: US (occurrence: US)
  Receive Date: 20210510
  Receipt Date: 20210824
  Transmission Date: 20211014
  Serious: Yes (Other)
  Sender: FDA-Public Use
  Company Number: US-BAYER-2021-136342

PATIENT
  Age: 24 Year
  Sex: Male

DRUGS (15)
  1. KOVALTRY [Suspect]
     Active Substance: ANTIHEMOPHILIC FACTOR, HUMAN RECOMBINANT
     Dosage: 1 DF; TO TREAT LEFT KNEE BLEED
     Dates: start: 20210714, end: 20210714
  2. PFIZER?BIONTECH COVID?19 VACCINE [Concomitant]
     Active Substance: TOZINAMERAN
     Indication: COVID-19 IMMUNISATION
     Dosage: UNK
     Dates: start: 20210506, end: 20210506
  3. KOVALTRY [Suspect]
     Active Substance: ANTIHEMOPHILIC FACTOR, HUMAN RECOMBINANT
     Dosage: 1 DOSE USED TO TREAT BLEED
     Route: 042
     Dates: start: 20210429, end: 20210429
  4. KOVALTRY [Suspect]
     Active Substance: ANTIHEMOPHILIC FACTOR, HUMAN RECOMBINANT
     Dosage: 1 DOSE FOR PREVENTION AND 1 DOSE FOR A BLEED
     Route: 042
     Dates: start: 20210413, end: 20210413
  5. KOVALTRY [Suspect]
     Active Substance: ANTIHEMOPHILIC FACTOR, HUMAN RECOMBINANT
     Dosage: 3500 IU, ONCE (TO TREAT THE LEFT KNEE BLEED)
     Route: 042
     Dates: start: 20210523, end: 20210523
  6. KOVALTRY [Suspect]
     Active Substance: ANTIHEMOPHILIC FACTOR, HUMAN RECOMBINANT
     Dosage: 3500 IU, ONCE, FOR THE LEFT KNEE BLEED TREATMENT
     Route: 042
     Dates: start: 20210620, end: 20210620
  7. KOVALTRY [Suspect]
     Active Substance: ANTIHEMOPHILIC FACTOR, HUMAN RECOMBINANT
     Dosage: 1 DF; TO TREAT LEFT KNEE BLEED
     Dates: start: 20210707, end: 20210707
  8. KOVALTRY [Suspect]
     Active Substance: ANTIHEMOPHILIC FACTOR, HUMAN RECOMBINANT
     Dosage: 1 DF; FOR MY LEFT KNEE DUE TO EXCESSIVE WALKING
     Route: 042
     Dates: start: 20210728
  9. KOVALTRY [Suspect]
     Active Substance: ANTIHEMOPHILIC FACTOR, HUMAN RECOMBINANT
     Dosage: 3500 IU, UNK
     Route: 042
  10. KOVALTRY [Suspect]
     Active Substance: ANTIHEMOPHILIC FACTOR, HUMAN RECOMBINANT
     Dosage: 1 DF; FOR PREVENTATIVE FOR MY LEFT KNEE
     Route: 042
     Dates: start: 20210806
  11. KOVALTRY [Suspect]
     Active Substance: ANTIHEMOPHILIC FACTOR, HUMAN RECOMBINANT
     Dosage: 3500 IU, ONCE, FOR THE LEFT KNEE BLEED TREATMENT
     Route: 042
     Dates: start: 20210616, end: 20210616
  12. KOVALTRY [Suspect]
     Active Substance: ANTIHEMOPHILIC FACTOR, HUMAN RECOMBINANT
     Dosage: 1 DF; TO TREAT RIGHT ANKLE BLEED
     Dates: start: 20210721, end: 20210721
  13. PFIZER?BIONTECH COVID?19 VACCINE [Concomitant]
     Active Substance: TOZINAMERAN
     Indication: COVID-19 IMMUNISATION
     Dosage: UNK
     Dates: start: 20210601, end: 20210601
  14. KOVALTRY [Suspect]
     Active Substance: ANTIHEMOPHILIC FACTOR, HUMAN RECOMBINANT
     Dosage: 3500 IU, ONCE (BEFORE COVID VACCINE)
     Route: 042
     Dates: start: 20210506, end: 20210506
  15. KOVALTRY [Suspect]
     Active Substance: ANTIHEMOPHILIC FACTOR, HUMAN RECOMBINANT
     Dosage: 3500 IU, ONCE (BEFORE COVID VACCINE)
     Route: 042
     Dates: start: 20210601, end: 20210601

REACTIONS (13)
  - Haemarthrosis [Recovered/Resolved]
  - Arthropathy [Recovered/Resolved]
  - Haemarthrosis [Recovered/Resolved]
  - Haemarthrosis [Recovered/Resolved]
  - Haemarthrosis [Recovered/Resolved]
  - Contusion [Recovered/Resolved]
  - Peripheral swelling [Recovered/Resolved]
  - Haemarthrosis [Recovered/Resolved]
  - Joint injury [None]
  - Haemarthrosis [Recovered/Resolved]
  - Haemarthrosis [Recovered/Resolved]
  - Haemarthrosis [Recovered/Resolved]
  - Traumatic haemorrhage [None]

NARRATIVE: CASE EVENT DATE: 20210413
